FAERS Safety Report 6525038-X (Version None)
Quarter: 2009Q4

REPORT INFORMATION
  Report Type: 
  Country: None (occurrence: None)
  Receive Date: 20091231
  Receipt Date: 20091231
  Transmission Date: 20100525
  Serious: Yes (Hospitalization, Other)
  Sender: FDA-Public Use
  Company Number: None

PATIENT
  Age: 49 Year
  Sex: Female
  Weight: 100.6985 kg

DRUGS (1)
  1. CHANTIX [Suspect]

REACTIONS (9)
  - ANXIETY [None]
  - DEPRESSION [None]
  - INSOMNIA [None]
  - IRRITABILITY [None]
  - MOOD ALTERED [None]
  - OVERDOSE [None]
  - PAIN [None]
  - RASH [None]
  - SLEEP DISORDER [None]
